FAERS Safety Report 8940060 (Version 1)
Quarter: 2012Q4

REPORT INFORMATION
  Report Type: 
  Country: US (occurrence: US)
  Receive Date: 20121203
  Receipt Date: 20121203
  Transmission Date: 20130627
  Serious: No
  Sender: FDA-Public Use
  Company Number: US-009507513-1211USA009179

PATIENT
  Sex: Female

DRUGS (1)
  1. COSOPT [Suspect]
     Dosage: 2 Gtt, bid
     Route: 047
     Dates: start: 200611

REACTIONS (2)
  - Eye irritation [Not Recovered/Not Resolved]
  - Drug dose omission [Unknown]
